FAERS Safety Report 26064256 (Version 4)
Quarter: 2025Q4

REPORT INFORMATION
  Report Type: Spontaneous
  Country: US (occurrence: US)
  Receive Date: 20251119
  Receipt Date: 20251204
  Transmission Date: 20260118
  Serious: No
  Sender: KARYOPHARM THERAPEUTICS
  Company Number: US-KARYOPHARM-2025KPT100959

PATIENT

DRUGS (14)
  1. SELINEXOR [Suspect]
     Active Substance: SELINEXOR
     Indication: Plasma cell myeloma
     Dosage: 40 MG WEEKLY 3 WEEKS ON AND 1 WEEK OFF
     Route: 048
     Dates: start: 20251103
  2. POMALYST [Concomitant]
     Active Substance: POMALIDOMIDE
  3. ATORVASTATIN [Concomitant]
     Active Substance: ATORVASTATIN
  4. DEXAMETHASONE [Concomitant]
     Active Substance: DEXAMETHASONE
  5. ESTRACE [Concomitant]
     Active Substance: ESTRADIOL
  6. ACETAMINOPHEN\CODEINE PHOSPHATE [Concomitant]
     Active Substance: ACETAMINOPHEN\CODEINE PHOSPHATE
  7. GABAPENTIN [Concomitant]
     Active Substance: GABAPENTIN
  8. FOSRENOL [Concomitant]
     Active Substance: LANTHANUM CARBONATE
  9. LEVOTHYROXINE SODIUM [Concomitant]
     Active Substance: LEVOTHYROXINE SODIUM
  10. METOPROLOL TARTRATE [Concomitant]
     Active Substance: METOPROLOL TARTRATE
  11. OMEPRAZOLE [Concomitant]
     Active Substance: OMEPRAZOLE
  12. ONDANSETRON HYDROCHLORIDE [Concomitant]
     Active Substance: ONDANSETRON HYDROCHLORIDE
  13. PROCHLORPERAZINE MALEATE [Concomitant]
     Active Substance: PROCHLORPERAZINE MALEATE
  14. ACYCLOVIR [Concomitant]
     Active Substance: ACYCLOVIR

REACTIONS (2)
  - Vision blurred [Not Recovered/Not Resolved]
  - Nausea [Not Recovered/Not Resolved]

NARRATIVE: CASE EVENT DATE: 20251101
